FAERS Safety Report 25639455 (Version 1)
Quarter: 2025Q3

REPORT INFORMATION
  Report Type: Spontaneous
  Country: US (occurrence: None)
  Receive Date: 20250802
  Receipt Date: 20250802
  Transmission Date: 20251020
  Serious: Yes (Hospitalization, Other)
  Sender: FDA-CTU
  Company Number: None

PATIENT
  Sex: Female

DRUGS (1)
  1. TERIPARATIDE [Suspect]
     Active Substance: TERIPARATIDE
     Indication: Hypocalcaemia
     Dosage: FREQUENCY : DAILY;?STRENGTH: 250MCG/ML
     Route: 058
     Dates: start: 20241106

REACTIONS (3)
  - Renal disorder [None]
  - Monoplegia [None]
  - Hypercalcaemia [None]
